FAERS Safety Report 24174837 (Version 1)
Quarter: 2024Q3

REPORT INFORMATION
  Report Type: Spontaneous
  Country: DK (occurrence: DK)
  Receive Date: 20240805
  Receipt Date: 20240805
  Transmission Date: 20241016
  Serious: Yes (Disabling)
  Sender: COVIS PHARMA
  Company Number: DK-Covis Pharma Europe B.V.-2024COV00949

PATIENT
  Age: 70 Year
  Sex: Male
  Weight: 77 kg

DRUGS (2)
  1. ALVESCO [Suspect]
     Active Substance: CICLESONIDE
     Indication: Asthma
     Dosage: FROM 20JUN2024 THE PATIENT TOOK 320 UG IN THE MORNING AND IN THE EVENING. DUE TO THE ADRS THE PATIEN
     Dates: start: 20240620
  2. ALVESCO [Suspect]
     Active Substance: CICLESONIDE
     Dosage: NORMAL DOSAGE 320 UG IN THE MORNING
     Dates: start: 20140104, end: 20240619

REACTIONS (2)
  - Headache [Recovered/Resolved]
  - Peripheral coldness [Recovered/Resolved]

NARRATIVE: CASE EVENT DATE: 20240620
